FAERS Safety Report 13635335 (Version 1)
Quarter: 2017Q2

REPORT INFORMATION
  Report Type: Spontaneous
  Country: US (occurrence: US)
  Receive Date: 20170608
  Receipt Date: 20170608
  Transmission Date: 20170830
  Serious: Yes (Disabling)
  Sender: FDA-Public Use
  Company Number: None

PATIENT
  Age: 69 Year
  Sex: Female
  Weight: 81 kg

DRUGS (13)
  1. VALIUM [Concomitant]
     Active Substance: DIAZEPAM
  2. ADVIL [Concomitant]
     Active Substance: IBUPROFEN
  3. VITAMIN C [Concomitant]
     Active Substance: ASCORBIC ACID
  4. DANDELION/THISTLE [Concomitant]
  5. VITAMIN D [Concomitant]
     Active Substance: CHOLECALCIFEROL
  6. ARMOUR THYROID [Concomitant]
     Active Substance: THYROID, PORCINE
  7. DYAZIDE [Concomitant]
     Active Substance: HYDROCHLOROTHIAZIDE\TRIAMTERENE
  8. VITAMIN B [Concomitant]
     Active Substance: VITAMIN B
  9. CHOLINE [Concomitant]
     Active Substance: CHOLINE
  10. PROBIOTIC [Concomitant]
     Active Substance: PROBIOTICS NOS
  11. CIPROFLOXACIN. [Suspect]
     Active Substance: CIPROFLOXACIN
     Indication: URINARY TRACT INFECTION
     Dosage: QUANTITY:12 TABLET(S);OTHER ROUTE:INITIALLY IV?
     Dates: start: 20150213, end: 20150222
  12. TRAMADOL. [Concomitant]
     Active Substance: TRAMADOL
  13. SELENIUM [Concomitant]
     Active Substance: SELENIUM

REACTIONS (12)
  - Feeling cold [None]
  - Abasia [None]
  - Blood glucose increased [None]
  - Arthralgia [None]
  - Loss of personal independence in daily activities [None]
  - Pain [None]
  - Impaired quality of life [None]
  - Peripheral swelling [None]
  - Joint swelling [None]
  - Alopecia [None]
  - Tendonitis [None]
  - Impaired work ability [None]

NARRATIVE: CASE EVENT DATE: 20150213
